FAERS Safety Report 8124669-3 (Version None)
Quarter: 2012Q1

REPORT INFORMATION
  Report Type: 
  Country: None (occurrence: None)
  Receive Date: 20120209
  Receipt Date: 20120209
  Transmission Date: 20120608
  Serious: Yes (Life-Threatening, Hospitalization, Other)
  Sender: FDA-Public Use
  Company Number: None

PATIENT
  Age: 55 Year
  Sex: Female
  Weight: 48.534 kg

DRUGS (1)
  1. LISINOPRIL [Suspect]
     Indication: BLOOD PRESSURE INCREASED
     Dosage: 10 MG.
     Route: 048
     Dates: start: 20111115, end: 20120120

REACTIONS (32)
  - CHILLS [None]
  - HEART RATE INCREASED [None]
  - PAIN IN JAW [None]
  - PAIN IN EXTREMITY [None]
  - ERUCTATION [None]
  - NAUSEA [None]
  - JOINT SWELLING [None]
  - BLOOD PRESSURE INCREASED [None]
  - THROAT TIGHTNESS [None]
  - IMPAIRED WORK ABILITY [None]
  - FORMICATION [None]
  - APHASIA [None]
  - CHEST DISCOMFORT [None]
  - EMPHYSEMA [None]
  - COUGH [None]
  - RHINORRHOEA [None]
  - ARTHRALGIA [None]
  - HYPOTENSION [None]
  - TOOTHACHE [None]
  - FLATULENCE [None]
  - MUSCLE SPASMS [None]
  - DIZZINESS [None]
  - DYSPNOEA [None]
  - PALPITATIONS [None]
  - MUSCULOSKELETAL PAIN [None]
  - EAR PAIN [None]
  - CHEST PAIN [None]
  - VISION BLURRED [None]
  - DIARRHOEA [None]
  - CHOKING [None]
  - OESOPHAGEAL DISORDER [None]
  - FEAR [None]
